FAERS Safety Report 4918127-4 (Version None)
Quarter: 2006Q1

REPORT INFORMATION
  Report Type: 
  Country: None (occurrence: None)
  Receive Date: 20060215
  Receipt Date: 20060206
  Transmission Date: 20060701
  Serious: Yes (Other)
  Sender: FDA-Public Use
  Company Number: 2006-02-0242

PATIENT
  Age: 17 Year
  Sex: Male

DRUGS (5)
  1. AERIUS (DESLORATADINE) TABLETS (LIKE CLARINEX) [Suspect]
     Indication: PRURITUS
     Dosage: 5 MG QD; ORAL
     Route: 048
     Dates: start: 20051104, end: 20051104
  2. TAVEGYL [Concomitant]
  3. EMOVAT [Concomitant]
  4. HYDROCORTISONE [Concomitant]
  5. PROPYLESS (PROPYLENE GLYCOL) [Concomitant]

REACTIONS (2)
  - ANGIONEUROTIC OEDEMA [None]
  - DYSPHAGIA [None]
